FAERS Safety Report 21481207 (Version 1)
Quarter: 2022Q4

REPORT INFORMATION
  Report Type: Spontaneous
  Country: US (occurrence: None)
  Receive Date: 20221019
  Receipt Date: 20221019
  Transmission Date: 20230113
  Serious: No
  Sender: FDA-Public Use
  Company Number: None

PATIENT
  Sex: Female

DRUGS (1)
  1. GLATIRAMER ACETATE [Suspect]
     Active Substance: GLATIRAMER ACETATE
     Indication: Multiple sclerosis
     Dosage: 40MG 3 TIMES A WEEK SQ?
     Route: 058
     Dates: start: 20201001

REACTIONS (4)
  - Multiple sclerosis [None]
  - Asthenia [None]
  - Tremor [None]
  - Therapy interrupted [None]
